FAERS Safety Report 21448017 (Version 1)
Quarter: 2022Q4

REPORT INFORMATION
  Report Type: Spontaneous
  Country: DE (occurrence: DE)
  Receive Date: 20221012
  Receipt Date: 20221012
  Transmission Date: 20230113
  Serious: Yes (Hospitalization)
  Sender: FDA-Public Use
  Company Number: DE-ADRED-08504-01

PATIENT
  Age: 80 Year
  Sex: Female

DRUGS (19)
  1. RISPERIDONE [Suspect]
     Active Substance: RISPERIDONE
     Indication: Product used for unknown indication
     Dosage: 1 DOSAGE FORMS DAILY; 2 MG, 0-0.5-0.5-0
     Route: 065
  2. MELPERONE [Suspect]
     Active Substance: MELPERONE
     Indication: Product used for unknown indication
     Dosage: 1.5 DOSAGE FORMS DAILY; 25 MG, 0-0-1-0.5
     Route: 065
  3. PREGABALIN [Suspect]
     Active Substance: PREGABALIN
     Indication: Product used for unknown indication
     Dosage: 100 MILLIGRAM DAILY; 50 MG, 1-1-0-0
     Route: 065
  4. PREGABALIN [Suspect]
     Active Substance: PREGABALIN
     Dosage: 25 MILLIGRAM DAILY; 25 MG, 0-0-0-1
     Route: 065
  5. SERTRALINE [Interacting]
     Active Substance: SERTRALINE HYDROCHLORIDE
     Indication: Product used for unknown indication
     Dosage: 50 MILLIGRAM DAILY; 50 MG, 1-0-0-0
     Route: 065
  6. PERAZINE DIMALONATE [Suspect]
     Active Substance: PERAZINE DIMALONATE
     Indication: Product used for unknown indication
     Dosage: 50 MILLIGRAM DAILY; 25 MG, 1-1-0-0, STRENGTH : 25 MG
  7. ACETYLCYSTEINE [Concomitant]
     Active Substance: ACETYLCYSTEINE
     Indication: Product used for unknown indication
     Dosage: 600 MILLIGRAM DAILY; 600 MG, 1-0-0-0, ACC 600
  8. SODIUM CHLORIDE [Concomitant]
     Active Substance: SODIUM CHLORIDE
     Indication: Product used for unknown indication
     Dosage: 500 ML, IF NECESSARY
  9. DULCOLAX NOS [Concomitant]
     Active Substance: BISACODYL OR DOCUSATE SODIUM
     Indication: Product used for unknown indication
     Dosage: IF NECESSARY, STRENGTH : 10 MG
  10. INSULIN ASPART [Concomitant]
     Active Substance: INSULIN ASPART
     Indication: Product used for unknown indication
     Dosage: ACCORDING TO SCHEME
  11. AmoxiClav-1A Pharma [Concomitant]
     Indication: Product used for unknown indication
     Dosage: 3 DOSAGE FORMS DAILY; 500|125 MG, 1-1-1-0, AMOXICLAV 500/125-1A PHARMA
  12. METAMIZOL [Concomitant]
     Active Substance: METAMIZOLE SODIUM
     Indication: Product used for unknown indication
     Dosage: 1000 MILLIGRAM DAILY; 500 MG, 1-0-1-0
  13. CARVEDILOL [Concomitant]
     Active Substance: CARVEDILOL
     Indication: Product used for unknown indication
     Dosage: 12.5 MILLIGRAM DAILY; 12.5 MG, 1-0-0-0
  14. ASPIRIN [Concomitant]
     Active Substance: ASPIRIN
     Indication: Product used for unknown indication
     Dosage: 100 MILLIGRAM DAILY; 100 MG, 0-1-0-0
  15. PIPAMPERONE HYDROCHLORIDE [Concomitant]
     Active Substance: PIPAMPERONE HYDROCHLORIDE
     Indication: Product used for unknown indication
     Dosage: 40 MG, IF NECESSARY
  16. LANTUS [Concomitant]
     Active Substance: INSULIN GLARGINE
     Indication: Product used for unknown indication
     Dosage: 8 DOSAGE FORMS DAILY; 0-0-0-8
  17. SITAGLIPTIN [Concomitant]
     Active Substance: SITAGLIPTIN
     Indication: Product used for unknown indication
     Dosage: 50 MILLIGRAM DAILY; 50 MG, 1-0-0-0
  18. RAMIPRIL [Concomitant]
     Active Substance: RAMIPRIL
     Indication: Product used for unknown indication
     Dosage: .5 DOSAGE FORMS DAILY; 5 MG, 0-0-0.5-0
  19. LACTULOSE [Concomitant]
     Active Substance: LACTULOSE
     Indication: Product used for unknown indication
     Dosage: 10 DOSAGE FORMS DAILY; 5-0-5-0

REACTIONS (18)
  - Urosepsis [Unknown]
  - Blood creatine phosphokinase increased [Unknown]
  - Pneumonia [Unknown]
  - Dehydration [Unknown]
  - Thrombocytopenia [Unknown]
  - Hypotension [Unknown]
  - General physical health deterioration [Unknown]
  - Infection [Unknown]
  - Acute kidney injury [Unknown]
  - Tachycardia [Unknown]
  - Labelled drug-drug interaction medication error [Unknown]
  - Cough [Unknown]
  - Pyrexia [Unknown]
  - Hypernatraemia [Unknown]
  - Disturbance in attention [Unknown]
  - Atrial fibrillation [Unknown]
  - Hypovolaemia [Unknown]
  - Atrial fibrillation [Unknown]
